FAERS Safety Report 19015068 (Version 1)
Quarter: 2021Q1

REPORT INFORMATION
  Report Type: Spontaneous
  Country: US (occurrence: US)
  Receive Date: 20210317
  Receipt Date: 20210317
  Transmission Date: 20210420
  Serious: Yes (Other)
  Sender: FDA-Public Use
  Company Number: US-AMGEN-USASP2021040146

PATIENT
  Age: 2 Year
  Sex: Male

DRUGS (3)
  1. VINCRISTINE [Concomitant]
     Active Substance: VINCRISTINE
     Dosage: UNK
  2. EPOETIN ALFA [Suspect]
     Active Substance: ERYTHROPOIETIN
     Indication: ANAEMIA
     Dosage: UNK
     Route: 065
  3. METHOTREXATE. [Concomitant]
     Active Substance: METHOTREXATE
     Dosage: 100 MILLIGRAM/SQ. METER, QD

REACTIONS (5)
  - Neutropenia [Unknown]
  - Bacteraemia [Unknown]
  - Thrombocytopenia [Unknown]
  - Trichophytosis [Unknown]
  - Serum ferritin increased [Recovering/Resolving]
